FAERS Safety Report 13627285 (Version 1)
Quarter: 2017Q2

REPORT INFORMATION
  Report Type: Report from Study
  Country: JP (occurrence: JP)
  Receive Date: 20170608
  Receipt Date: 20170608
  Transmission Date: 20170830
  Serious: Yes (Hospitalization)
  Sender: FDA-Public Use
  Company Number: JP-AMGEN-JPNCT2017086048

PATIENT
  Age: 70 Year
  Sex: Female
  Weight: 48 kg

DRUGS (14)
  1. PASETOCIN [Concomitant]
     Active Substance: AMOXICILLIN
     Indication: PNEUMONIA ASPIRATION
     Dosage: UNK
     Route: 048
  2. CINACALCET HCL [Suspect]
     Active Substance: CINACALCET HYDROCHLORIDE
     Indication: HYPERPARATHYROIDISM PRIMARY
     Dosage: 25 MG, QD
     Route: 048
     Dates: start: 20160923, end: 20160930
  3. ZYPREXA [Concomitant]
     Active Substance: OLANZAPINE
     Indication: PERSECUTORY DELUSION
     Dosage: 1.25 MG, UNK
     Route: 048
  4. SEPAZON [Concomitant]
     Active Substance: CLOXAZOLAM
     Indication: INSOMNIA
     Dosage: 1 MG, UNK
     Route: 048
  5. ENALAPRIL [Concomitant]
     Active Substance: ENALAPRIL
     Indication: HYPERTENSION
     Dosage: 2.5 MG, UNK
     Route: 048
     Dates: start: 20161026
  6. AUGMENTIN [Concomitant]
     Active Substance: AMOXICILLIN\CLAVULANATE POTASSIUM
     Indication: PNEUMONIA ASPIRATION
     Dosage: UNK
     Route: 048
  7. ZOLPIDEM TARTRATE. [Concomitant]
     Active Substance: ZOLPIDEM TARTRATE
     Indication: INSOMNIA
     Dosage: 5 MG, UNK
     Route: 048
  8. DOGMATYL [Concomitant]
     Active Substance: SULPIRIDE
     Indication: PERSECUTORY DELUSION
     Dosage: 5 MG, UNK
     Route: 048
     Dates: end: 20161025
  9. XARELTO [Concomitant]
     Active Substance: RIVAROXABAN
     Indication: DEEP VEIN THROMBOSIS
     Dosage: 15 MG, UNK
     Route: 048
  10. FAMOTIDINE. [Concomitant]
     Active Substance: FAMOTIDINE
     Indication: GASTRITIS
     Dosage: 40 MG, UNK
     Route: 048
     Dates: start: 20160920
  11. CINACALCET HCL [Suspect]
     Active Substance: CINACALCET HYDROCHLORIDE
     Dosage: 100 MG, QD
     Route: 048
     Dates: start: 20161019
  12. ASPARA POTASSIUM [Concomitant]
     Active Substance: POTASSIUM ASPARTATE
     Indication: HYPOKALAEMIA
     Dosage: 3 G, UNK
     Route: 048
  13. PHOSRIBBON [Concomitant]
     Indication: HYPOPHOSPHATAEMIA
     Dosage: 1200 MG, UNK
     Route: 048
     Dates: start: 20160910
  14. CINACALCET HCL [Suspect]
     Active Substance: CINACALCET HYDROCHLORIDE
     Dosage: 75 MG, QD
     Route: 048
     Dates: start: 20161001, end: 20161018

REACTIONS (3)
  - Urinary tract infection [Recovered/Resolved]
  - Pneumonia aspiration [Recovering/Resolving]
  - Chondrocalcinosis pyrophosphate [Recovering/Resolving]

NARRATIVE: CASE EVENT DATE: 20160925
